FAERS Safety Report 18475500 (Version 2)
Quarter: 2020Q4

REPORT INFORMATION
  Report Type: Spontaneous
  Country: DE (occurrence: DE)
  Receive Date: 20201107
  Receipt Date: 20201117
  Transmission Date: 20210114
  Serious: Yes (Other)
  Sender: FDA-Public Use
  Company Number: DE-AUROBINDO-AUR-APL-2020-053150

PATIENT
  Age: 61 Year
  Sex: Female

DRUGS (2)
  1. RIVASTIGMINE. [Suspect]
     Active Substance: RIVASTIGMINE
     Indication: HEREDITARY ATAXIA
     Dosage: 4.6 MILLIGRAM, ONCE A DAY
     Route: 062
  2. RIVASTIGMINE. [Suspect]
     Active Substance: RIVASTIGMINE
     Dosage: 9.6 MILLIGRAM, ONCE A DAY
     Route: 062

REACTIONS (4)
  - Condition aggravated [Unknown]
  - Off label use [Recovered/Resolved]
  - Asthma [Unknown]
  - Product use in unapproved indication [Unknown]
